FAERS Safety Report 16805219 (Version 1)
Quarter: 2019Q4

REPORT INFORMATION
  Report Type: Spontaneous
  Country: US (occurrence: US)
  Receive Date: 20190913
  Receipt Date: 20190913
  Transmission Date: 20200122
  Serious: Yes (Hospitalization)
  Sender: FDA-Public Use
  Company Number: None

PATIENT
  Age: 49 Year
  Sex: Female
  Weight: 129.6 kg

DRUGS (6)
  1. AIMOVIG [Suspect]
     Active Substance: ERENUMAB-AOOE
     Indication: MIGRAINE
     Dates: start: 20190905
  2. AIMOVIG SYNTHROID .88MCG [Concomitant]
  3. ROBAXIN [Concomitant]
     Active Substance: METHOCARBAMOL
  4. VITAMIN D GREENS SUPPLEMENT [Concomitant]
  5. ZOPHRAN [Concomitant]
  6. NORCO [Concomitant]
     Active Substance: ACETAMINOPHEN\HYDROCODONE BITARTRATE

REACTIONS (18)
  - Muscle twitching [None]
  - Hyperhidrosis [None]
  - Lethargy [None]
  - Blood glucose decreased [None]
  - Palpitations [None]
  - Dyspnoea [None]
  - Disturbance in attention [None]
  - Vomiting [None]
  - Vertigo [None]
  - Constipation [None]
  - Dizziness [None]
  - Arthralgia [None]
  - Mental impairment [None]
  - Nausea [None]
  - Headache [None]
  - Feeling hot [None]
  - Tremor [None]
  - Confusional state [None]

NARRATIVE: CASE EVENT DATE: 20190912
